FAERS Safety Report 6256074-9 (Version None)
Quarter: 2009Q2

REPORT INFORMATION
  Report Type: 
  Country: None (occurrence: None)
  Receive Date: 20090630
  Receipt Date: 20090630
  Transmission Date: 20091009
  Serious: Yes (Disabling)
  Sender: FDA-Public Use
  Company Number: None

PATIENT
  Sex: Male
  Weight: 72.7 kg

DRUGS (1)
  1. ZICAM NO-DRIP LIQUID NASAL GEL [Suspect]
     Indication: NASOPHARYNGITIS
     Dosage: 1-SPRAY PER NOSTRIL PER DAY ONCE A DAY NOSE
     Route: 045
     Dates: start: 20050101

REACTIONS (1)
  - HYPOSMIA [None]
